FAERS Safety Report 14947210 (Version 1)
Quarter: 2018Q2

REPORT INFORMATION
  Report Type: Spontaneous
  Country: US (occurrence: US)
  Receive Date: 20180529
  Receipt Date: 20180529
  Transmission Date: 20180711
  Serious: No
  Sender: FDA-Public Use
  Company Number: US-B.I. PHARMACEUTICALS,INC./RIDGEFIELD-2018-BI-027696

PATIENT
  Age: 81 Year
  Sex: Male
  Weight: 84 kg

DRUGS (2)
  1. GILOTRIF [Suspect]
     Active Substance: AFATINIB
     Indication: LUNG NEOPLASM MALIGNANT
     Route: 048
     Dates: start: 20170707
  2. QUINAPRIL. [Concomitant]
     Active Substance: QUINAPRIL
     Indication: PRODUCT USED FOR UNKNOWN INDICATION
     Route: 048

REACTIONS (7)
  - Therapeutic response unexpected [Not Recovered/Not Resolved]
  - Rash [Recovered/Resolved]
  - Weight increased [Not Recovered/Not Resolved]
  - Therapeutic response unexpected [Not Recovered/Not Resolved]
  - Therapeutic response unexpected [Not Recovered/Not Resolved]
  - Therapeutic response unexpected [Not Recovered/Not Resolved]
  - Rash papular [Not Recovered/Not Resolved]

NARRATIVE: CASE EVENT DATE: 2017
